FAERS Safety Report 13747942 (Version 2)
Quarter: 2017Q4

REPORT INFORMATION
  Report Type: Spontaneous
  Country: CA (occurrence: CA)
  Receive Date: 20170713
  Receipt Date: 20171117
  Transmission Date: 20180320
  Serious: Yes (Hospitalization, Other)
  Sender: FDA-Public Use
  Company Number: CA-ORION CORPORATION ORION PHARMA-TREX2017-1638

PATIENT
  Age: 35 Year
  Sex: Female

DRUGS (6)
  1. HUMIRA [Suspect]
     Active Substance: ADALIMUMAB
     Dosage: AT A HIGH DOSE
     Route: 065
  2. METHOTREXATE (TRADE NAME UNKNOWN) [Suspect]
     Active Substance: METHOTREXATE
     Route: 065
  3. CORTISONE [Concomitant]
     Active Substance: CORTISONE\HYDROCORTISONE
     Route: 065
  4. PURINETHOL [Suspect]
     Active Substance: MERCAPTOPURINE
     Route: 065
  5. STELARA [Suspect]
     Active Substance: USTEKINUMAB
     Route: 065
  6. ENTOCORT [Concomitant]
     Active Substance: BUDESONIDE
     Route: 065

REACTIONS (3)
  - Diarrhoea [Unknown]
  - Intestinal obstruction [Not Recovered/Not Resolved]
  - Fatigue [Unknown]
